FAERS Safety Report 11170348 (Version 1)
Quarter: 2015Q2

REPORT INFORMATION
  Report Type: Spontaneous
  Country: GB (occurrence: None)
  Receive Date: 20150604
  Receipt Date: 20150604
  Transmission Date: 20150821
  Serious: Yes (Hospitalization, Other)
  Sender: FDA-Public Use
  Company Number: ADR-2015-01072

PATIENT
  Age: 27 Year
  Sex: Female

DRUGS (13)
  1. BACLOFEN. [Suspect]
     Active Substance: BACLOFEN
  2. LACTULOSE. [Suspect]
     Active Substance: LACTULOSE
  3. HYDROCORTISONE. [Suspect]
     Active Substance: HYDROCORTISONE
     Dosage: MORNING AND LUNCHTIME
  4. CLONAZEPAM. [Suspect]
     Active Substance: CLONAZEPAM
     Dosage: AT NIGHT
  5. DESMOPRESSIN [Suspect]
     Active Substance: DESMOPRESSIN
  6. GABAPENTIN. [Suspect]
     Active Substance: GABAPENTIN
  7. MELATONIN [Suspect]
     Active Substance: MELATONIN
     Dosage: AT NIGHT
  8. BACLOFEN. [Suspect]
     Active Substance: BACLOFEN
  9. SENNA [Suspect]
     Active Substance: SENNA LEAF\SENNOSIDES\SENNOSIDES A AND B
     Dosage: AT NIGHT
  10. LEVOTHYROXINE [Suspect]
     Active Substance: LEVOTHYROXINE
     Dosage: 75 MCG IN THE MORNING (INCREASED FROM 50 MCG 48 H PREVIOUSLY)
  11. LAMOTRIGINE. [Suspect]
     Active Substance: LAMOTRIGINE
  12. ACETAMINOPHEN AND CODEINE [Suspect]
     Active Substance: ACETAMINOPHEN\CODEINE PHOSPHATE
     Dosage: 8/500 TWO TABLETS FOUR TIMES A DAY
  13. PREMPAK [Suspect]
     Active Substance: ESTROGENS, CONJUGATED\NORGESTREL
     Dosage: 1 TABLET IN THE MORNING

REACTIONS (3)
  - Hyponatraemia [None]
  - Drug interaction [None]
  - Seizure [None]

NARRATIVE: CASE EVENT DATE: 20150319
